FAERS Safety Report 6711106-6 (Version None)
Quarter: 2010Q2

REPORT INFORMATION
  Report Type: 
  Country: None (occurrence: None)
  Receive Date: 20100505
  Receipt Date: 20100426
  Transmission Date: 20101027
  Serious: Yes (Hospitalization)
  Sender: FDA-Public Use
  Company Number: US-CEPHALON-2010002428

PATIENT
  Sex: Female
  Weight: 57 kg

DRUGS (13)
  1. ACTIQ [Suspect]
     Indication: FIBROMYALGIA
     Route: 002
     Dates: start: 20030101, end: 20050101
  2. ACTIQ [Suspect]
     Indication: MIGRAINE
     Route: 002
     Dates: start: 20030101, end: 20050101
  3. ACTIQ [Suspect]
     Indication: TRIGEMINAL NEURALGIA
     Route: 002
     Dates: start: 20070101, end: 20100110
  4. ACTIQ [Suspect]
     Indication: OSTEOARTHRITIS
     Route: 002
     Dates: start: 20070101, end: 20100110
  5. OXCARBAZEPINE [Suspect]
     Dates: start: 20050101, end: 20050101
  6. METHADONE HCL [Suspect]
  7. OXYCODONE [Concomitant]
     Indication: FIBROMYALGIA
     Dates: start: 20010101
  8. OXYCODONE [Concomitant]
     Indication: OSTEOARTHRITIS
  9. OXYCONTIN [Concomitant]
     Indication: FIBROMYALGIA
     Dates: start: 20010101
  10. AMBIEN CR [Concomitant]
     Dates: start: 20080101, end: 20100101
  11. XANAX [Concomitant]
     Indication: MYALGIA
     Dates: start: 20050101
  12. RISPERDAL [Concomitant]
     Indication: FIBROMYALGIA
     Dates: start: 20050101, end: 20091201
  13. OXCARBAZEPINE [Concomitant]
     Indication: TRIGEMINAL NEURALGIA
     Dates: start: 20090101, end: 20090101

REACTIONS (16)
  - ARTIFICIAL CROWN PROCEDURE [None]
  - CONVULSION [None]
  - DENTAL CARIES [None]
  - DRUG DEPENDENCE [None]
  - DRUG PRESCRIBING ERROR [None]
  - DRUG WITHDRAWAL SYNDROME [None]
  - FACE AND MOUTH X-RAY [None]
  - FORMICATION [None]
  - INSOMNIA [None]
  - RESTLESS LEGS SYNDROME [None]
  - TOOTH DISCOLOURATION [None]
  - TOOTH EXTRACTION [None]
  - TOOTH INFECTION [None]
  - TOOTH LOSS [None]
  - TRIGEMINAL NEURALGIA [None]
  - WEIGHT DECREASED [None]
